FAERS Safety Report 10053001 (Version 1)
Quarter: 2014Q1

REPORT INFORMATION
  Report Type: Spontaneous
  Country: CN (occurrence: None)
  Receive Date: 20140331
  Receipt Date: 20140331
  Transmission Date: 20141002
  Serious: Yes (Hospitalization, Other)
  Sender: FDA-Public Use
  Company Number: ABR_01524_2014

PATIENT
  Age: 70 Year
  Sex: Male

DRUGS (4)
  1. LAMOTRIGINE [Suspect]
     Indication: EPILEPSY
  2. DONEPEZIL [Concomitant]
  3. NIMODIPINE [Concomitant]
  4. SODIUM VALROATE [Concomitant]

REACTIONS (9)
  - Therapy cessation [None]
  - Oropharyngeal pain [None]
  - Dysphagia [None]
  - Productive cough [None]
  - Photosensitivity reaction [None]
  - Drug-induced liver injury [None]
  - Tonsillar hypertrophy [None]
  - Drug reaction with eosinophilia and systemic symptoms [None]
  - Histiocytosis [None]
